FAERS Safety Report 9472175 (Version 5)
Quarter: 2013Q4

REPORT INFORMATION
  Report Type: Report from Study
  Country: AU (occurrence: AU)
  Receive Date: 20130823
  Receipt Date: 20131021
  Transmission Date: 20140711
  Serious: Yes (Hospitalization)
  Sender: FDA-Public Use
  Company Number: AU-VERTEX PHARMACEUTICALS INC-2013-008979

PATIENT
  Age: 33 Year
  Sex: Male

DRUGS (48)
  1. VX-950 (TELAPREVIR) [Suspect]
     Indication: HEPATITIS C
     Dosage: 1125 MG, TID, TABLET
     Route: 048
     Dates: start: 20120814, end: 20121108
  2. RIBAVIRIN [Suspect]
     Indication: PRODUCT USED FOR UNKNOWN INDICATION
     Dosage: DOSAGE FORM: UNSPECIFIED
     Route: 048
     Dates: start: 20120814, end: 20130124
  3. RIBAVIRIN [Suspect]
     Dosage: DOSAGE FORM: UNSPECIFIED
     Route: 048
     Dates: start: 20130130, end: 20130716
  4. PEG INTERFERON [Suspect]
     Indication: PRODUCT USED FOR UNKNOWN INDICATION
     Dosage: DOSAGE FORM: UNSPECIFIED, P60259,P60267,P60265,P60300,P60305,P60561,P60565,P60569,P60680,P40565,P615
     Route: 058
     Dates: start: 20120814, end: 20130716
  5. PARACETAMOL [Concomitant]
     Indication: PRODUCT USED FOR UNKNOWN INDICATION
     Dosage: 2 DF, QD
     Route: 048
     Dates: start: 20120826, end: 20120826
  6. PARACETAMOL [Concomitant]
     Dosage: STAT
     Route: 048
     Dates: start: 20130306, end: 20130306
  7. PARACETAMOL [Concomitant]
     Dosage: STAT
     Route: 048
     Dates: start: 20130308, end: 20130308
  8. PARACETAMOL [Concomitant]
     Dosage: PRN
     Route: 048
     Dates: start: 20130217, end: 20130220
  9. PARACETAMOL [Concomitant]
     Dosage: 1 G, TID
     Route: 048
     Dates: start: 20130701, end: 20130702
  10. IBUPROFEN [Concomitant]
     Indication: PRODUCT USED FOR UNKNOWN INDICATION
     Dosage: DOSAGE FORM: UNSPECIFIED, STAT
     Route: 048
     Dates: start: 20130308, end: 20130308
  11. IBUPROFEN [Concomitant]
     Dosage: DOSAGE FORM: UNSPECIFIED, STAT
     Route: 048
     Dates: start: 20130306, end: 20130306
  12. METHAMPHETAMINE [Concomitant]
     Indication: PRODUCT USED FOR UNKNOWN INDICATION
     Dosage: DOSAGE FORM: CRYSTALS, 1.0 (UNSPECIFIED UNITS, FREQUENCY)
     Route: 042
     Dates: start: 20130124, end: 20130130
  13. DIAZEPAM [Concomitant]
     Indication: DEPRESSED MOOD
     Dosage: DOSAGE FORM: UNSPECIFIED, FREQUENCY: NOCTE
     Route: 048
     Dates: start: 20130201, end: 20130423
  14. ENOXAPARIN [Concomitant]
     Indication: PULMONARY EMBOLISM
     Dosage: DOSAGE FORM: UNSPECIFIED
     Route: 058
     Dates: start: 20130306, end: 20130324
  15. WARFARIN [Concomitant]
     Indication: PULMONARY EMBOLISM
     Dosage: DOSAGE FORM: UNSPECIFIED
     Route: 048
     Dates: start: 20130309, end: 20130310
  16. WARFARIN [Concomitant]
     Dosage: DOSAGE FORM: UNSPECIFIED
     Route: 048
     Dates: start: 20130311, end: 20130312
  17. WARFARIN [Concomitant]
     Dosage: DOSAGE FORM: UNSPECIFIED
     Route: 048
     Dates: start: 20130313, end: 20130314
  18. WARFARIN [Concomitant]
     Dosage: DOSAGE FORM: UNSPECIFIED
     Route: 048
     Dates: start: 20130315, end: 20130316
  19. WARFARIN [Concomitant]
     Dosage: DOSAGE FORM: UNSPECIFIED
     Route: 048
     Dates: start: 20130317, end: 20130320
  20. WARFARIN [Concomitant]
     Dosage: DOSAGE FORM: UNSPECIFIED
     Route: 048
     Dates: start: 20130321, end: 20130325
  21. WARFARIN [Concomitant]
     Dosage: DOSAGE FORM: UNSPECIFIED
     Route: 048
     Dates: start: 20130326
  22. ERYTHROMYCIN [Concomitant]
     Indication: PRODUCT USED FOR UNKNOWN INDICATION
     Dosage: DOSAGE FORM: UNSPECIFIED
     Route: 048
     Dates: start: 20130305, end: 20130306
  23. MIRTAZAPINE [Concomitant]
     Indication: DEPRESSED MOOD
     Dosage: DOSAGE FORM: UNSPECIFIED, FREQUENCY: NOCTE
     Route: 048
     Dates: start: 20130217
  24. SORBELENE [Concomitant]
     Indication: DRY SKIN
     Dosage: DOSAGE FORM: CREAM, DOSE: 1.0, UNIT: APPLICATION
     Route: 061
     Dates: start: 20130308, end: 20130309
  25. ENDONE [Concomitant]
     Indication: PRODUCT USED FOR UNKNOWN INDICATION
     Dosage: DOSAGE FORM: UNSPECIFIED
     Route: 048
     Dates: start: 20130217, end: 20130218
  26. ENDONE [Concomitant]
     Dosage: DOSAGE FORM: UNSPECIFIED
     Route: 048
     Dates: start: 20130218, end: 20130218
  27. ENDONE [Concomitant]
     Dosage: DOSAGE FORM: UNSPECIFIED
     Route: 048
     Dates: start: 20130219, end: 20130219
  28. ENDONE [Concomitant]
     Dosage: DOSAGE FORM: UNSPECIFIED, AS REQUIRED
     Route: 048
     Dates: start: 20130701, end: 20130706
  29. TEMAZEPAM [Concomitant]
     Indication: PRODUCT USED FOR UNKNOWN INDICATION
     Dosage: DOSAGE FORM: UNSPECIFIED, FREQUENCY: NOCTE
     Route: 048
     Dates: start: 20130423
  30. MS CONTIN [Concomitant]
     Indication: PRODUCT USED FOR UNKNOWN INDICATION
     Dosage: DOSAGE FORM: UNSPECIFIED
     Route: 048
     Dates: start: 20130218, end: 20130221
  31. INDOMETHACIN [Concomitant]
     Indication: PRODUCT USED FOR UNKNOWN INDICATION
     Dosage: DOSAGE FORM: UNSPECIFIED
     Route: 048
     Dates: start: 20130218, end: 20130218
  32. INDOMETHACIN [Concomitant]
     Dosage: DOSAGE FORM: UNSPECIFIED
     Route: 048
     Dates: start: 20130219, end: 20130220
  33. INDOMETHACIN [Concomitant]
     Dosage: DOSAGE FORM: UNSPECIFIED
     Route: 048
     Dates: start: 20130221, end: 20130221
  34. OMEPRAZOLE [Concomitant]
     Indication: GASTRITIS EROSIVE
     Dosage: DOSAGE FORM: UNSPECIFIED
     Route: 048
     Dates: start: 20130219, end: 20130221
  35. METOCLOPRAMIDE [Concomitant]
     Indication: NAUSEA
     Dosage: DOSAGE FORM: UNSPECIFIED
     Route: 048
     Dates: start: 20130221, end: 20130221
  36. CLEXANE [Concomitant]
     Indication: PRODUCT USED FOR UNKNOWN INDICATION
     Dosage: DOSAGE FORM: UNSPECIFIED
     Route: 058
     Dates: start: 20130218, end: 20130221
  37. CLEXANE [Concomitant]
     Dosage: DOSAGE FORM: UNSPECIFIED
     Route: 058
     Dates: start: 20130306, end: 20130320
  38. SULFAMETHOXAZOLE [Concomitant]
     Indication: PNEUMOCYSTIS JIROVECII PNEUMONIA
     Dosage: DOSAGE FORM: UNSPECIFIED, PRN
     Route: 048
     Dates: start: 20130217, end: 20130221
  39. TRIMETHOPRIM [Concomitant]
     Indication: PNEUMOCYSTIS JIROVECII PNEUMONIA
     Dosage: DOSAGE FORM: UNSPECIFIED, PRN
     Route: 048
     Dates: start: 20130217, end: 20130221
  40. ONDANSETRON [Concomitant]
     Indication: NAUSEA
     Dosage: DOSAGE FORM: UNSPECIFIED, PRN
     Route: 048
     Dates: start: 20130219, end: 20130221
  41. PROCHLORPERAZINE [Concomitant]
     Indication: NAUSEA
     Dosage: DOSAGE FORM: UNSPECIFIED, STAT
     Route: 030
     Dates: start: 20130221, end: 20130221
  42. LOMOTIL [Concomitant]
     Indication: DIARRHOEA
     Dosage: DOSAGE FORM: UNSPECIFIED, AS REQUIRED
     Route: 048
     Dates: start: 20130523
  43. TENOFOVIR [Concomitant]
     Indication: HIV INFECTION
     Dosage: DOSAGE FORM: TABLET, 1 TABLET
     Route: 048
     Dates: start: 20100616
  44. EFAVIRENZ [Concomitant]
     Indication: HIV INFECTION
     Dosage: DOSAGE FORM: TABLET, 1 TABLET
     Route: 048
     Dates: start: 20100616
  45. EMTRICITABINE [Concomitant]
     Indication: HIV INFECTION
     Dosage: DOSAGE FORM: TABLET, 1 TABLET
     Route: 048
     Dates: start: 20100616
  46. METHOXYFLURANE [Concomitant]
     Indication: PRODUCT USED FOR UNKNOWN INDICATION
     Dosage: DOSAGE FORM: UNSPECIFIED
     Route: 055
     Dates: start: 20130306, end: 20130306
  47. HYDROZOLE [Concomitant]
     Indication: CANDIDA INFECTION
     Dosage: DOSAGE FORM: CREAM, DOSE - 1.0 (UNSPECIFIED UNITS)
     Route: 061
     Dates: start: 20120828
  48. CLOTRIMAZOLE [Concomitant]
     Indication: CANDIDA INFECTION
     Dosage: DOSAGE FORM: CREAM
     Route: 061
     Dates: start: 20120821, end: 20120827

REACTIONS (1)
  - Chest pain [Recovered/Resolved]
